FAERS Safety Report 12454258 (Version 1)
Quarter: 2016Q2

REPORT INFORMATION
  Report Type: Spontaneous
  Country: US (occurrence: US)
  Receive Date: 20160610
  Receipt Date: 20160610
  Transmission Date: 20160815
  Serious: No
  Sender: FDA-Public Use
  Company Number: US-TEVA-660470USA

PATIENT
  Sex: Female
  Weight: 52.21 kg

DRUGS (1)
  1. MIMVEY LO [Suspect]
     Active Substance: ESTRADIOL\NORETHINDRONE ACETATE
     Indication: MENOPAUSAL SYMPTOMS
     Dosage: 1 MG/0.5 MG
     Route: 065
     Dates: start: 20160301, end: 20160511

REACTIONS (5)
  - Abdominal distension [Unknown]
  - Breast tenderness [Unknown]
  - Metrorrhagia [Unknown]
  - Abdominal pain [Unknown]
  - Fluid retention [Unknown]
